FAERS Safety Report 16608051 (Version 1)
Quarter: 2019Q3

REPORT INFORMATION
  Report Type: Spontaneous
  Country: FR (occurrence: FR)
  Receive Date: 20190722
  Receipt Date: 20190722
  Transmission Date: 20191004
  Serious: Yes (Death, Congenital Anomaly, Other)
  Sender: FDA-Public Use
  Company Number: FR-AUROBINDO-AUR-APL-2019-042768

PATIENT

DRUGS (5)
  1. ESOMEPRAZOLE. [Suspect]
     Active Substance: ESOMEPRAZOLE MAGNESIUM
     Indication: PROPHYLAXIS
     Dosage: 20 MILLIGRAM, ONCE A DAY
     Route: 064
     Dates: start: 20180204, end: 20180718
  2. DIFFU K [Suspect]
     Active Substance: POTASSIUM CHLORIDE
     Indication: MINERAL SUPPLEMENTATION
     Dosage: 1 DOSAGE FORM, ONCE A DAY
     Route: 064
     Dates: start: 20180204, end: 20180718
  3. CORTANCYL [Suspect]
     Active Substance: PREDNISONE
     Indication: SJOGREN^S SYNDROME
     Dosage: 1 DOSAGE FORM, ONCE A DAY
     Route: 064
     Dates: start: 20180204, end: 20180718
  4. PLAQUENIL [Suspect]
     Active Substance: HYDROXYCHLOROQUINE SULFATE
     Indication: SJOGREN^S SYNDROME
     Dosage: 400 MILLIGRAM, ONCE A DAY
     Route: 064
     Dates: start: 20180204, end: 20180718
  5. IMUREL [Suspect]
     Active Substance: AZATHIOPRINE SODIUM
     Indication: SJOGREN^S SYNDROME
     Dosage: 150 MILLIGRAM, ONCE A DAY
     Route: 064
     Dates: start: 20180204, end: 20180718

REACTIONS (6)
  - Patent ductus arteriosus [Fatal]
  - Premature baby [Fatal]
  - Foetal growth restriction [Not Recovered/Not Resolved]
  - Congenital bowing of long bones [Not Recovered/Not Resolved]
  - Congenital osteodystrophy [Not Recovered/Not Resolved]
  - Premature separation of placenta [Not Recovered/Not Resolved]

NARRATIVE: CASE EVENT DATE: 20180423
